FAERS Safety Report 14037457 (Version 1)
Quarter: 2017Q4

REPORT INFORMATION
  Report Type: Spontaneous
  Country: US (occurrence: US)
  Receive Date: 20171003
  Receipt Date: 20171003
  Transmission Date: 20180321
  Serious: Yes (Other)
  Sender: FDA-Public Use
  Company Number: None

PATIENT
  Age: 48 Year
  Sex: Female
  Weight: 61.2 kg

DRUGS (1)
  1. CHLORHEXIDINE [Suspect]
     Active Substance: CHLORHEXIDINE
     Indication: BREAST ABSCESS
     Dates: start: 20170927

REACTIONS (4)
  - Loss of consciousness [None]
  - Blood pressure decreased [None]
  - Syncope [None]
  - Product odour abnormal [None]

NARRATIVE: CASE EVENT DATE: 20170927
